FAERS Safety Report 4951230-1 (Version None)
Quarter: 2006Q1

REPORT INFORMATION
  Report Type: 
  Country: None (occurrence: None)
  Receive Date: 20060314
  Receipt Date: 20060313
  Transmission Date: 20060701
  Serious: Yes (Death)
  Sender: FDA-Public Use
  Company Number: TAP2006Q00411

PATIENT
  Age: 79 Year
  Sex: Male

DRUGS (2)
  1. LUPRON DEPOT-3 [Suspect]
     Indication: PROSTATE CANCER
     Dosage: 22.5 MG, 1 IN 3 M, INTRAMUSCULAR
     Route: 030
     Dates: start: 20021213, end: 20051215
  2. PREDNISONE TAB [Concomitant]

REACTIONS (2)
  - MALIGNANT NEOPLASM PROGRESSION [None]
  - PROSTATE CANCER [None]
